FAERS Safety Report 9166147 (Version 1)
Quarter: 2013Q1

REPORT INFORMATION
  Report Type: Spontaneous
  Country: GB (occurrence: None)
  Receive Date: 20130301
  Receipt Date: 20130301
  Transmission Date: 20140127
  Serious: Yes (Other)
  Sender: FDA-Public Use
  Company Number: AUR_APL_2013-01606

PATIENT
  Age: 32 Year
  Sex: Female
  Weight: 62 kg

DRUGS (3)
  1. AMOXICILLIN (AMOXICILLIN) [Suspect]
     Indication: URINARY TRACT INFECTION
     Dosage: 1500 MG (1500 MG, 3 IN 1 D), ORAL
     Route: 048
     Dates: start: 20130122, end: 20130127
  2. BUSCOPAN (BUSCOPAN COMP.) [Concomitant]
  3. OMEPRAZOLE (OMEPRAZOLE) [Concomitant]

REACTIONS (3)
  - Acute hepatic failure [None]
  - Drug-induced liver injury [None]
  - Jaundice [None]
